FAERS Safety Report 5203826-X (Version None)
Quarter: 2007Q1

REPORT INFORMATION
  Report Type: 
  Country: None (occurrence: None)
  Receive Date: 20070105
  Receipt Date: 20061227
  Transmission Date: 20070707
  Serious: Yes (Hospitalization)
  Sender: FDA-Public Use
  Company Number: 151300USA

PATIENT
  Age: 48 Year
  Sex: Male

DRUGS (11)
  1. BACLOFEN [Suspect]
     Dosage: 30 MG (10MG, 3 IN 1D), ORAL
     Route: 048
     Dates: start: 20060110, end: 20060215
  2. CELECOXIB [Suspect]
     Dosage: 200 MG (100 MG, 2 1 D), ORAL
     Route: 048
     Dates: start: 20060110, end: 20060215
  3. METHADONE HCL [Suspect]
     Dosage: 40 MG (20 MG, 2 IN 1 D), ORAL
     Route: 048
     Dates: start: 20060110
  4. TYLOX [Suspect]
     Dosage: TWO TABLETS (1 IN D HOURS), ORAL
     Route: 048
     Dates: start: 20060110, end: 20060215
  5. MINOCYCLINE HYDROCHLORIDE [Concomitant]
  6. ESCITALOPRAM OXALATE [Concomitant]
  7. PANTOPRAZOLE SODIUM [Concomitant]
  8. ZOLPIDEM TARTRATE [Concomitant]
  9. GABAPENTIN [Concomitant]
  10. PROCHLORPERAZINE EDISYLATE [Concomitant]
  11. SUNITINIB MALATE [Suspect]
     Indication: RENAL CELL CARCINOMA STAGE UNSPECIFIED
     Dosage: 50 MG (50 MG, 1 IN 1 D), ORAL
     Route: 048
     Dates: start: 20060124

REACTIONS (4)
  - FATIGUE [None]
  - HYPERTENSION [None]
  - LETHARGY [None]
  - TOXIC INDUCED ENCEPHALOPATHY [None]
